FAERS Safety Report 6499138-7 (Version None)
Quarter: 2009Q4

REPORT INFORMATION
  Report Type: 
  Country: None (occurrence: None)
  Receive Date: 20091215
  Receipt Date: 20091125
  Transmission Date: 20100525
  Serious: Yes (Death)
  Sender: FDA-Public Use
  Company Number: FR-GENENTECH-295737

PATIENT
  Age: 96 Year
  Sex: Female

DRUGS (2)
  1. RANIBIZUMAB [Suspect]
     Indication: MACULAR DEGENERATION
     Dosage: UNK
     Route: 031
     Dates: start: 20090323
  2. RANIBIZUMAB [Suspect]
     Dosage: UNK
     Route: 031
     Dates: start: 20090428

REACTIONS (1)
  - DEATH [None]
